FAERS Safety Report 25149994 (Version 3)
Quarter: 2025Q2

REPORT INFORMATION
  Report Type: Spontaneous
  Country: FR (occurrence: FR)
  Receive Date: 20250402
  Receipt Date: 20250616
  Transmission Date: 20250717
  Serious: Yes (Other)
  Sender: PFIZER
  Company Number: FR-ROCHE-10000230343

PATIENT
  Age: 67 Year
  Sex: Male
  Weight: 90 kg

DRUGS (9)
  1. BEVACIZUMAB [Suspect]
     Active Substance: BEVACIZUMAB
     Indication: Hepatocellular carcinoma
     Dosage: 1350 MG, EVERY 3 WEEKS
     Route: 042
     Dates: start: 20241030, end: 20250128
  2. ATEZOLIZUMAB [Suspect]
     Active Substance: ATEZOLIZUMAB
     Indication: Hepatocellular carcinoma
     Dosage: 1200 MG, EVERY 3 WEEKS
     Route: 042
     Dates: start: 20241030, end: 20250128
  3. TEMESTA [Concomitant]
     Indication: Anxiety
     Dosage: 1 MG, 1X/DAY
     Dates: start: 2020
  4. BECLOMETHASONE DIPROPIONATE\FORMOTEROL FUMARATE\GLYCOPYRROLATE [Concomitant]
     Active Substance: BECLOMETHASONE DIPROPIONATE\FORMOTEROL FUMARATE\GLYCOPYRROLATE
     Indication: Chronic obstructive pulmonary disease
     Dates: start: 2016
  5. ALBUTEROL SULFATE [Concomitant]
     Active Substance: ALBUTEROL SULFATE
     Indication: Chronic obstructive pulmonary disease
     Dates: start: 2016
  6. RILMENIDINE PHOSPHATE [Concomitant]
     Active Substance: RILMENIDINE PHOSPHATE
     Indication: Hypertension
     Dosage: 1 MG, 1X/DAY
     Dates: start: 2011
  7. HYDROCHLOROTHIAZIDE\IRBESARTAN [Concomitant]
     Active Substance: HYDROCHLOROTHIAZIDE\IRBESARTAN
     Indication: Hypertension
     Dosage: 150 MG, 1X/DAY
     Dates: start: 2011
  8. CIALIS [Concomitant]
     Active Substance: TADALAFIL
     Indication: Erectile dysfunction
     Dosage: 100 MG, 1X/DAY
     Dates: start: 20241107
  9. ISRADIPINE [Concomitant]
     Active Substance: ISRADIPINE
     Indication: Hypertension
     Dosage: 5 MG, 1X/DAY
     Dates: start: 2011

REACTIONS (2)
  - Immune-mediated myocarditis [Not Recovered/Not Resolved]
  - Off label use [Unknown]

NARRATIVE: CASE EVENT DATE: 20241030
